FAERS Safety Report 25546041 (Version 5)
Quarter: 2025Q4

REPORT INFORMATION
  Report Type: Report from Study
  Country: US (occurrence: US)
  Receive Date: 20250712
  Receipt Date: 20251222
  Transmission Date: 20260117
  Serious: Yes (Hospitalization)
  Sender: JAZZ
  Company Number: US-JAZZ PHARMACEUTICALS-2025-US-017032

PATIENT
  Sex: Female
  Weight: 30.839 kg

DRUGS (4)
  1. EPIDIOLEX [Suspect]
     Active Substance: CANNABIDIOL
     Indication: Infantile spasms
     Dosage: 1.5 MILLILITER, BID
     Dates: start: 202409
  2. EPIDIOLEX [Suspect]
     Active Substance: CANNABIDIOL
     Indication: Seizure
     Dosage: 0.75 MILLILITER, BID
     Dates: start: 20240813
  3. EPIDIOLEX [Suspect]
     Active Substance: CANNABIDIOL
     Indication: Epilepsy
     Dosage: 0.75 MILLILITER, BID
     Dates: start: 202409
  4. ONFI [Suspect]
     Active Substance: CLOBAZAM
     Indication: Product used for unknown indication
     Dosage: UNK

REACTIONS (3)
  - Ammonia increased [Not Recovered/Not Resolved]
  - Weight decreased [Unknown]
  - Off label use [Unknown]
